FAERS Safety Report 23567625 (Version 3)
Quarter: 2024Q3

REPORT INFORMATION
  Report Type: Report from Study
  Country: US (occurrence: US)
  Receive Date: 20240226
  Receipt Date: 20240912
  Transmission Date: 20241017
  Serious: Yes (Other)
  Sender: ABBVIE
  Company Number: US-ABBVIE-4345574

PATIENT
  Sex: Female

DRUGS (3)
  1. VENCLEXTA [Suspect]
     Active Substance: VENETOCLAX
     Indication: Hodgkin^s disease nodular sclerosis
     Dosage: TAKE 4 TABLET (400MG TOTAL ) BY MOUTH DAILY (WITH BREAKFAST )?FORM STRENGTH: 100 MG
     Route: 048
  2. VENCLEXTA [Suspect]
     Active Substance: VENETOCLAX
     Indication: Hodgkin^s disease nodular sclerosis
     Dosage: TAKE 4 TABLET (400MG TOTAL ) BY MOUTH DAILY (WITH BREAKFAST )?FORM STRENGTH: 100 MG
     Route: 048
     Dates: start: 202405
  3. COVID-19 VACCINE NOS [Suspect]
     Active Substance: COVID-19 VACCINE
     Indication: COVID-19 immunisation
     Route: 065

REACTIONS (7)
  - Deafness [Unknown]
  - Off label use [Unknown]
  - Immunisation reaction [Unknown]
  - Peripheral swelling [Unknown]
  - Amnesia [Unknown]
  - Sinusitis [Unknown]
  - Pain in extremity [Unknown]
